FAERS Safety Report 9637149 (Version 1)
Quarter: 2013Q4

REPORT INFORMATION
  Report Type: Spontaneous
  Country: None (occurrence: US)
  Receive Date: 20131022
  Receipt Date: 20131022
  Transmission Date: 20140711
  Serious: Yes (Hospitalization)
  Sender: FDA-Public Use
  Company Number: US-ACCORD-019967

PATIENT
  Age: 54 Year
  Sex: Male

DRUGS (1)
  1. DOCETAXEL [Suspect]
     Indication: LUNG ADENOCARCINOMA
     Dates: start: 201207, end: 201210

REACTIONS (2)
  - Alveolitis allergic [Recovering/Resolving]
  - Rash maculo-papular [Recovering/Resolving]
